FAERS Safety Report 9787861 (Version 1)
Quarter: 2013Q4

REPORT INFORMATION
  Report Type: Spontaneous
  Country: JP (occurrence: JP)
  Receive Date: 20131230
  Receipt Date: 20131230
  Transmission Date: 20140711
  Serious: Yes (Hospitalization)
  Sender: FDA-Public Use
  Company Number: JP-JNJFOC-20131214758

PATIENT
  Age: 88 Year
  Sex: Male
  Weight: 45 kg

DRUGS (6)
  1. XARELTO [Suspect]
     Indication: CEREBROVASCULAR ACCIDENT PROPHYLAXIS
     Route: 048
     Dates: start: 20130910, end: 20131016
  2. DIART [Concomitant]
     Indication: CARDIAC FAILURE
     Route: 048
     Dates: start: 20130819
  3. MIYA BM [Concomitant]
     Indication: DYSBACTERIOSIS
     Route: 048
     Dates: start: 20130819
  4. PODONIN S [Concomitant]
     Indication: GASTRITIS
     Route: 048
     Dates: start: 20130819
  5. TAKEPRON [Concomitant]
     Indication: GASTRITIS
     Route: 048
     Dates: start: 20130819
  6. JANUVIA [Concomitant]
     Indication: DIABETES MELLITUS
     Route: 048
     Dates: start: 20130819

REACTIONS (4)
  - Cholelithiasis [Not Recovered/Not Resolved]
  - Hepatic function abnormal [Recovering/Resolving]
  - Haematuria [Recovering/Resolving]
  - Pyrexia [Unknown]
